FAERS Safety Report 15354465 (Version 2)
Quarter: 2018Q3

REPORT INFORMATION
  Report Type: Spontaneous
  Country: US (occurrence: US)
  Receive Date: 20180906
  Receipt Date: 20180927
  Transmission Date: 20181010
  Serious: Yes (Death, Other)
  Sender: FDA-Public Use
  Company Number: US-ROCHE-2181221

PATIENT
  Age: 73 Year
  Sex: Male

DRUGS (8)
  1. PREDNISONE. [Concomitant]
     Active Substance: PREDNISONE
     Indication: IDIOPATHIC PULMONARY FIBROSIS
     Route: 048
     Dates: end: 20180827
  2. ATORVASTATIN [Concomitant]
     Active Substance: ATORVASTATIN
     Indication: BLOOD CHOLESTEROL INCREASED
     Dosage: QD*1
     Route: 048
     Dates: end: 20180827
  3. DILTIAZEM. [Concomitant]
     Active Substance: DILTIAZEM
     Indication: HYPERTENSION
     Dosage: 5*DAILY
     Route: 048
     Dates: end: 20180827
  4. ASPIRIN. [Concomitant]
     Active Substance: ASPIRIN
     Dosage: QD*1
     Route: 048
     Dates: end: 20180827
  5. METFORMIN [Concomitant]
     Active Substance: METFORMIN HYDROCHLORIDE
     Indication: DIABETES MELLITUS
     Route: 048
     Dates: end: 20180827
  6. ESBRIET [Suspect]
     Active Substance: PIRFENIDONE
     Indication: IDIOPATHIC PULMONARY FIBROSIS
     Route: 048
     Dates: start: 20170403, end: 20180827
  7. ESBRIET [Suspect]
     Active Substance: PIRFENIDONE
     Route: 048
     Dates: start: 20170323, end: 201808
  8. GLIPIZIDE. [Concomitant]
     Active Substance: GLIPIZIDE
     Indication: DIABETES MELLITUS
     Route: 048
     Dates: end: 20180827

REACTIONS (5)
  - Pulmonary fibrosis [Fatal]
  - Respiratory failure [Fatal]
  - Hypoxia [Unknown]
  - Atrial fibrillation [Unknown]
  - Syncope [Fatal]

NARRATIVE: CASE EVENT DATE: 20180818
